FAERS Safety Report 6655155-5 (Version None)
Quarter: 2010Q1

REPORT INFORMATION
  Report Type: 
  Country: None (occurrence: None)
  Receive Date: 20100317
  Receipt Date: 20100201
  Transmission Date: 20100710
  Serious: No
  Sender: FDA-Public Use
  Company Number: DSA_42550_2010

PATIENT
  Sex: Male

DRUGS (1)
  1. XENAZINE [Suspect]
     Indication: HUNTINGTON'S CHOREA
     Dosage: 62.5 MG, 1/2 25 MG TABLET Q AM, AND WHOLE 25 MG TABLET AT LUNCH AND IN EVENING.  ORAL)
     Route: 048
     Dates: start: 20100101

REACTIONS (4)
  - CRYING [None]
  - DEPRESSION [None]
  - FEELINGS OF WORTHLESSNESS [None]
  - PSYCHIATRIC SYMPTOM [None]
